FAERS Safety Report 6370179-3 (Version None)
Quarter: 2009Q3

REPORT INFORMATION
  Report Type: 
  Country: None (occurrence: None)
  Receive Date: 20090918
  Receipt Date: 20090904
  Transmission Date: 20100115
  Serious: Yes (Other)
  Sender: FDA-Public Use
  Company Number: DSU-2009-01886

PATIENT
  Age: 16 Year
  Sex: Male

DRUGS (2)
  1. AZOR [Suspect]
     Indication: HYPERTENSION
     Dosage: PER ORAL
     Route: 048
     Dates: start: 20090101
  2. MICARDIS HCT (HYDROCHLOROTHIAZIDE, TELMISARTAN) (HYDROCHLOROTHIAZIDE, [Concomitant]

REACTIONS (1)
  - VISUAL ACUITY REDUCED [None]
